FAERS Safety Report 9057224 (Version 1)
Quarter: 2013Q1

REPORT INFORMATION
  Report Type: Spontaneous
  Country: US (occurrence: US)
  Receive Date: 20130131
  Receipt Date: 20130131
  Transmission Date: 20140127
  Serious: Yes (Hospitalization, Other)
  Sender: FDA-Public Use
  Company Number: US-GLAXOSMITHKLINE-A0972763B

PATIENT
  Sex: Male

DRUGS (4)
  1. LAMICTAL [Suspect]
     Indication: EPILEPSY
     Dosage: 150MG PER DAY
     Route: 064
     Dates: start: 20100803
  2. DEPAKOTE ER [Suspect]
     Indication: EPILEPSY
     Dosage: 2000MG PER DAY
     Route: 064
     Dates: start: 2009
  3. FOLIC ACID [Suspect]
     Indication: EPILEPSY
     Dosage: 4MG PER DAY
     Route: 064
  4. KLONOPIN [Suspect]
     Indication: EPILEPSY
     Dosage: .25MG PER DAY
     Route: 064

REACTIONS (3)
  - Dyspnoea [Unknown]
  - Feeding disorder neonatal [Unknown]
  - Foetal exposure during pregnancy [Unknown]
